FAERS Safety Report 18281895 (Version 1)
Quarter: 2020Q3

REPORT INFORMATION
  Report Type: Spontaneous
  Country: IT (occurrence: IT)
  Receive Date: 20200918
  Receipt Date: 20200918
  Transmission Date: 20201103
  Serious: Yes (Hospitalization)
  Sender: FDA-Public Use
  Company Number: IT-TEVA-2020-IT-1827952

PATIENT
  Age: 90 Year
  Sex: Male

DRUGS (2)
  1. DEPAKIN [Suspect]
     Active Substance: VALPROATE SODIUM
     Dosage: UNIT DOSE : 200 MILLIGRAM
     Route: 048
     Dates: start: 20200812, end: 20200812
  2. QUETIAPINE FUMARATE. [Suspect]
     Active Substance: QUETIAPINE FUMARATE
     Dosage: UNIT DOSE : 200 MILLIGRAM, THERAPEUTIC ERROR
     Route: 048
     Dates: start: 20200812, end: 20200812

REACTIONS (2)
  - Sopor [Recovering/Resolving]
  - Medication error [Recovering/Resolving]

NARRATIVE: CASE EVENT DATE: 20200812
